FAERS Safety Report 5476642-1 (Version None)
Quarter: 2007Q4

REPORT INFORMATION
  Report Type: 
  Country: None (occurrence: None)
  Receive Date: 20071004
  Receipt Date: 20070925
  Transmission Date: 20080405
  Serious: Yes (Other)
  Sender: FDA-Public Use
  Company Number: JP-JNJFOC-20070905424

PATIENT
  Age: 58 Year
  Sex: Male

DRUGS (1)
  1. ITRIZOLE [Suspect]
     Indication: NAIL TINEA
     Route: 048
     Dates: start: 20070914, end: 20070921

REACTIONS (2)
  - DRUG ERUPTION [None]
  - PIGMENTATION DISORDER [None]
